FAERS Safety Report 13555965 (Version 1)
Quarter: 2017Q2

REPORT INFORMATION
  Report Type: Spontaneous
  Country: US (occurrence: US)
  Receive Date: 20170517
  Receipt Date: 20170517
  Transmission Date: 20170830
  Serious: No
  Sender: FDA-Public Use
  Company Number: US-SA-2016SA213563

PATIENT
  Age: 65 Year
  Sex: Male

DRUGS (4)
  1. SOLOSTAR [Concomitant]
     Active Substance: DEVICE
  2. GLYBURIDE. [Concomitant]
     Active Substance: GLYBURIDE
  3. INVOKANA [Concomitant]
     Active Substance: CANAGLIFLOZIN
  4. TOUJEO [Suspect]
     Active Substance: INSULIN GLARGINE
     Indication: TYPE 2 DIABETES MELLITUS
     Dosage: DOSE:20 UNIT(S)
     Route: 065

REACTIONS (1)
  - Blood glucose increased [Not Recovered/Not Resolved]
